FAERS Safety Report 4700490-0 (Version None)
Quarter: 2005Q2

REPORT INFORMATION
  Report Type: 
  Country: None (occurrence: None)
  Receive Date: 20050627
  Receipt Date: 20050614
  Transmission Date: 20051028
  Serious: Yes (Hospitalization)
  Sender: FDA-Public Use
  Company Number: 2005AP03295

PATIENT
  Age: 21377 Day
  Sex: Female
  Weight: 47 kg

DRUGS (3)
  1. IRESSA [Suspect]
     Indication: SQUAMOUS CELL CARCINOMA
     Route: 048
     Dates: start: 20050510
  2. ATENOLOL [Concomitant]
     Indication: HYPERTENSION
     Route: 048
     Dates: start: 20050530
  3. LOMOTIL [Concomitant]
     Indication: DIARRHOEA
     Dosage: 75 UG/7.5 MG
     Route: 048
     Dates: start: 20050606

REACTIONS (3)
  - DEHYDRATION [None]
  - DIARRHOEA [None]
  - SYNCOPE [None]
